FAERS Safety Report 7126656-0 (Version None)
Quarter: 2010Q4

REPORT INFORMATION
  Report Type: 
  Country: None (occurrence: None)
  Receive Date: 20101129
  Receipt Date: 20101122
  Transmission Date: 20110411
  Serious: Yes (Hospitalization)
  Sender: FDA-Public Use
  Company Number: IT-ABBOTT-10P-083-0682984-00

PATIENT
  Sex: Female

DRUGS (7)
  1. MACLADIN [Suspect]
     Indication: PYREXIA
     Route: 048
     Dates: start: 20100914, end: 20100915
  2. GLIMEPIRIDE [Interacting]
     Indication: TYPE 1 DIABETES MELLITUS
     Dosage: 1 UNIT
     Route: 048
     Dates: start: 20100915, end: 20100915
  3. GLIMEPIRIDE [Interacting]
     Dates: start: 20100924
  4. LANOXIN [Concomitant]
     Indication: PRODUCT USED FOR UNKNOWN INDICATION
  5. MADOPAR [Concomitant]
     Indication: PRODUCT USED FOR UNKNOWN INDICATION
  6. ASPIRIN [Concomitant]
     Indication: PRODUCT USED FOR UNKNOWN INDICATION
  7. SEROQUEL [Concomitant]
     Indication: PRODUCT USED FOR UNKNOWN INDICATION

REACTIONS (2)
  - DRUG INTERACTION [None]
  - HYPOGLYCAEMIC COMA [None]
